FAERS Safety Report 5323430-2 (Version None)
Quarter: 2007Q2

REPORT INFORMATION
  Report Type: 
  Country: None (occurrence: None)
  Receive Date: 20070514
  Receipt Date: 20070502
  Transmission Date: 20071010
  Serious: Yes (Other)
  Sender: FDA-Public Use
  Company Number: PHNR2007AU00845

PATIENT
  Age: 60 Year
  Sex: Male

DRUGS (4)
  1. EXJADE [Suspect]
     Indication: IRON OVERLOAD
     Dosage: 1500MG DAILY
     Route: 048
     Dates: start: 20061219, end: 20070109
  2. PANADOL [Concomitant]
     Dosage: 2 TABLETS TDS FOR YEARS
  3. CELEBREX [Concomitant]
     Dosage: ONCE DAILY FOR YEARS
  4. PREDNISONE TAB [Concomitant]
     Dosage: 10 MG (FOR YEARS)

REACTIONS (6)
  - ALANINE AMINOTRANSFERASE INCREASED [None]
  - ASPARTATE AMINOTRANSFERASE INCREASED [None]
  - BLOOD ALKALINE PHOSPHATASE INCREASED [None]
  - BLOOD AMYLASE INCREASED [None]
  - GAMMA-GLUTAMYLTRANSFERASE INCREASED [None]
  - LIVER DISORDER [None]
